FAERS Safety Report 5834886-0 (Version None)
Quarter: 2008Q3

REPORT INFORMATION
  Report Type: 
  Country: None (occurrence: None)
  Receive Date: 20080806
  Receipt Date: 20080730
  Transmission Date: 20090109
  Serious: Yes (Other)
  Sender: FDA-Public Use
  Company Number: JP-BAYER-200811536BYL

PATIENT
  Age: 50 Year
  Sex: Female
  Weight: 45 kg

DRUGS (14)
  1. BETAFERON [Suspect]
     Indication: RELAPSING-REMITTING MULTIPLE SCLEROSIS
     Dosage: TOTAL DAILY DOSE: 2 MIU
     Route: 058
     Dates: start: 20070514, end: 20070722
  2. BETAFERON [Suspect]
     Dosage: TOTAL DAILY DOSE: 4 MIU
     Route: 058
     Dates: start: 20070728, end: 20070826
  3. BETAFERON [Suspect]
     Dosage: TOTAL DAILY DOSE: 8 MIU
     Route: 058
     Dates: start: 20070827, end: 20071125
  4. STEROID [Concomitant]
     Indication: RELAPSING-REMITTING MULTIPLE SCLEROSIS
     Route: 048
  5. IBUPRIN [Concomitant]
     Dosage: TOTAL DAILY DOSE: 200 MG  UNIT DOSE: 200 MG
     Route: 048
     Dates: start: 20070925
  6. PREDONINE [Concomitant]
     Indication: RELAPSING-REMITTING MULTIPLE SCLEROSIS
     Dosage: TOTAL DAILY DOSE: 10 MG  UNIT DOSE: 10 MG
     Route: 048
     Dates: start: 20070925
  7. DANTRIUM [Concomitant]
     Dosage: TOTAL DAILY DOSE: 25 MG  UNIT DOSE: 25 MG
     Route: 048
     Dates: start: 20070925
  8. LANSOPRAZOLE [Concomitant]
     Dosage: TOTAL DAILY DOSE: 30 MG  UNIT DOSE: 30 MG
     Route: 048
     Dates: start: 20070925
  9. GABALON [Concomitant]
     Dosage: TOTAL DAILY DOSE: 30 MG  UNIT DOSE: 10 MG
     Route: 048
     Dates: start: 20070925
  10. AMITRIPTYLINE HCL [Concomitant]
     Dosage: TOTAL DAILY DOSE: 50 MG  UNIT DOSE: 25 MG
     Route: 048
     Dates: start: 20070925
  11. EVAMYL [Concomitant]
     Dosage: TOTAL DAILY DOSE: 2 MG  UNIT DOSE: 1 MG
     Route: 048
     Dates: start: 20070925
  12. LIPITOR [Concomitant]
     Dosage: TOTAL DAILY DOSE: 10 MG  UNIT DOSE: 10 MG
     Route: 048
     Dates: start: 20070925
  13. ZEPOLAS [Concomitant]
     Dosage: TOTAL DAILY DOSE: 1 DF  UNIT DOSE: 1 DF
     Route: 062
     Dates: start: 20070925
  14. INTEBAN [Concomitant]
     Route: 061
     Dates: start: 20070925

REACTIONS (1)
  - INJECTION SITE ULCER [None]
